FAERS Safety Report 16181329 (Version 1)
Quarter: 2019Q2

REPORT INFORMATION
  Report Type: Spontaneous
  Country: IT (occurrence: IT)
  Receive Date: 20190410
  Receipt Date: 20190410
  Transmission Date: 20190711
  Serious: Yes (Hospitalization)
  Sender: FDA-Public Use
  Company Number: IT-MALLINCKRODT-T201606891

PATIENT
  Age: 50 Year
  Sex: Female

DRUGS (2)
  1. OFIRMEV [Suspect]
     Active Substance: ACETAMINOPHEN
     Indication: ABDOMINAL PAIN
     Dosage: 1 G, TOTAL
     Route: 042
     Dates: start: 20161102, end: 20161102
  2. SPASMEX (TROSPIUM CHLORIDE) [Suspect]
     Active Substance: TROSPIUM CHLORIDE
     Indication: ABDOMINAL PAIN
     Dosage: 80 MG, TOTAL (40/4 MG/ML)
     Route: 042
     Dates: start: 20161102, end: 20161102

REACTIONS (2)
  - Pain [Recovered/Resolved]
  - Anaphylactic reaction [Recovered/Resolved]

NARRATIVE: CASE EVENT DATE: 20161102
